FAERS Safety Report 21095063 (Version 1)
Quarter: 2022Q3

REPORT INFORMATION
  Report Type: Spontaneous
  Country: CN (occurrence: CN)
  Receive Date: 20220718
  Receipt Date: 20220718
  Transmission Date: 20221026
  Serious: Yes (Other)
  Sender: FDA-Public Use
  Company Number: CN-Merck Healthcare KGaA-9335856

PATIENT
  Age: 67 Year
  Sex: Male
  Weight: 33 kg

DRUGS (5)
  1. ERBITUX [Suspect]
     Active Substance: CETUXIMAB
     Indication: Colon cancer
     Dosage: 600 MG, DAILY
     Route: 041
     Dates: start: 20220519, end: 20220519
  2. OXALIPLATIN [Suspect]
     Active Substance: OXALIPLATIN
     Indication: Colon cancer
     Dosage: .15 G, DAILY
     Route: 065
     Dates: start: 20220224
  3. OXALIPLATIN [Suspect]
     Active Substance: OXALIPLATIN
     Dosage: .15 G, DAILY
     Route: 065
     Dates: start: 20220519
  4. RALTITREXED [Suspect]
     Active Substance: RALTITREXED
     Indication: Colon cancer
     Dosage: 4 MG, UNKNOWN
     Route: 065
     Dates: start: 20220224
  5. RALTITREXED [Suspect]
     Active Substance: RALTITREXED
     Dosage: 4 MG, UNKNOWN
     Route: 065
     Dates: start: 20220519

REACTIONS (2)
  - Myelosuppression [Recovering/Resolving]
  - Infection [Recovering/Resolving]

NARRATIVE: CASE EVENT DATE: 20220605
